FAERS Safety Report 14813875 (Version 1)
Quarter: 2018Q2

REPORT INFORMATION
  Report Type: Spontaneous
  Country: FR (occurrence: FR)
  Receive Date: 20180426
  Receipt Date: 20180426
  Transmission Date: 20180711
  Serious: Yes (Other)
  Sender: FDA-Public Use
  Company Number: FR-MERCK KGAA-2046572

PATIENT
  Age: 53 Year
  Sex: Female

DRUGS (1)
  1. NOVOTHYROX [Suspect]
     Active Substance: LEVOTHYROXINE SODIUM
     Indication: PRODUCT USED FOR UNKNOWN INDICATION

REACTIONS (11)
  - Fungal infection [None]
  - Gingival abscess [None]
  - Gingival pain [None]
  - Blood cholesterol increased [None]
  - Anxiety [None]
  - Stress [None]
  - Total cholesterol/HDL ratio decreased [None]
  - Fatigue [None]
  - Sleep disorder [None]
  - Blood potassium increased [None]
  - Pain in extremity [None]

NARRATIVE: CASE EVENT DATE: 201705
